FAERS Safety Report 8353210-5 (Version None)
Quarter: 2012Q2

REPORT INFORMATION
  Report Type: 
  Country: None (occurrence: None)
  Receive Date: 20120511
  Receipt Date: 20120502
  Transmission Date: 20120825
  Serious: Yes (Hospitalization)
  Sender: FDA-Public Use
  Company Number: FR-ASTRAZENECA-2012SE28724

PATIENT
  Age: 2048 Day
  Sex: Female

DRUGS (9)
  1. CLONAZEPAM [Concomitant]
  2. NAROPIN [Suspect]
     Indication: PAIN
     Dosage: 20 MG BOLUS
     Route: 008
     Dates: start: 20120316, end: 20120316
  3. AUGMENTIN [Concomitant]
  4. GENTAMICIN [Concomitant]
  5. LYRICA [Concomitant]
  6. NAROPIN [Suspect]
     Route: 008
     Dates: start: 20120316, end: 20120319
  7. KETAMINE [Concomitant]
  8. MORPHINE [Concomitant]
  9. AMITRIPTYLINE HCL [Concomitant]

REACTIONS (2)
  - BRADYCARDIA [None]
  - ATRIOVENTRICULAR BLOCK SECOND DEGREE [None]
